FAERS Safety Report 4311593-7 (Version None)
Quarter: 2004Q1

REPORT INFORMATION
  Report Type: 
  Country: None (occurrence: None)
  Receive Date: 20040302
  Receipt Date: 20031117
  Transmission Date: 20041129
  Serious: No
  Sender: FDA-Public Use
  Company Number: 200328524BWH

PATIENT
  Age: 76 Year
  Sex: Male
  Weight: 83.9154 kg

DRUGS (4)
  1. LEVITRA [Suspect]
     Indication: ERECTILE DYSFUNCTION
     Dosage: 10 MG, ONCE, ORAL
     Route: 048
     Dates: start: 20031113
  2. CARDURA [Suspect]
     Dosage: 4 MG, HIS NI
     Dates: start: 20031113
  3. ASPIRIN [Concomitant]
  4. ONE-A -DAY [Concomitant]

REACTIONS (5)
  - COLD SWEAT [None]
  - DIZZINESS [None]
  - NAUSEA [None]
  - STOMACH DISCOMFORT [None]
  - VOMITING [None]
